FAERS Safety Report 20793431 (Version 1)
Quarter: 2022Q2

REPORT INFORMATION
  Report Type: Report from Study
  Country: US (occurrence: US)
  Receive Date: 20220506
  Receipt Date: 20220506
  Transmission Date: 20220721
  Serious: Yes (Death)
  Sender: FDA-Public Use
  Company Number: US-ABBVIE-22K-163-4383153-00

PATIENT

DRUGS (1)
  1. SYNTHROID [Suspect]
     Active Substance: LEVOTHYROXINE SODIUM
     Indication: Thyroid atrophy
     Route: 048
     Dates: start: 2016

REACTIONS (2)
  - Surgery [Fatal]
  - Procedural complication [Fatal]

NARRATIVE: CASE EVENT DATE: 20220401
